FAERS Safety Report 23544510 (Version 6)
Quarter: 2024Q2

REPORT INFORMATION
  Report Type: Spontaneous
  Country: US (occurrence: US)
  Receive Date: 20240220
  Receipt Date: 20240513
  Transmission Date: 20240716
  Serious: No
  Sender: FDA-Public Use
  Company Number: US-Calliditas-2024CAL00197

PATIENT
  Age: 48 Year
  Sex: Male

DRUGS (6)
  1. TARPEYO [Suspect]
     Active Substance: BUDESONIDE
     Indication: IgA nephropathy
     Dosage: 16 MG (4 MG CAPSULES) ONCE DAILY
     Route: 048
     Dates: start: 20240201
  2. VALSARTAN [Concomitant]
     Active Substance: VALSARTAN
  3. CARVEDILOL [Concomitant]
     Active Substance: CARVEDILOL
  4. ATORVASTATIN [Concomitant]
     Active Substance: ATORVASTATIN
  5. NIFEDIPINE [Concomitant]
     Active Substance: NIFEDIPINE
  6. ASPIRIN [Concomitant]
     Active Substance: ASPIRIN

REACTIONS (8)
  - Sleep disorder [Recovered/Resolved]
  - Flushing [Unknown]
  - Proteinuria [Not Recovered/Not Resolved]
  - Discomfort [Recovered/Resolved]
  - Drug ineffective [Unknown]
  - Pain in extremity [Recovered/Resolved]
  - Paraesthesia [Recovered/Resolved]
  - Dyspepsia [Recovered/Resolved]

NARRATIVE: CASE EVENT DATE: 20240201
